FAERS Safety Report 21582935 (Version 1)
Quarter: 2022Q4

REPORT INFORMATION
  Report Type: Spontaneous
  Country: TN (occurrence: TN)
  Receive Date: 20221111
  Receipt Date: 20221111
  Transmission Date: 20230112
  Serious: Yes (Hospitalization)
  Sender: FDA-Public Use
  Company Number: TN-STRIDES ARCOLAB LIMITED-2022SP015006

PATIENT
  Age: 27 Year
  Sex: Male

DRUGS (3)
  1. ACETAZOLAMIDE [Interacting]
     Active Substance: ACETAZOLAMIDE
     Indication: Cerebrospinal fluid leakage
     Dosage: UNK
     Route: 065
  2. CARBAMAZEPINE [Interacting]
     Active Substance: CARBAMAZEPINE
     Indication: Partial seizures
     Dosage: 200 MILLIGRAM, BID
     Route: 065
  3. CEFOTAXIME [Concomitant]
     Active Substance: CEFOTAXIME SODIUM
     Indication: Prophylaxis
     Dosage: UNK 2G * 6/DAY
     Route: 065

REACTIONS (3)
  - Drug interaction [Unknown]
  - Hepatocellular injury [Recovered/Resolved]
  - Off label use [Unknown]
